FAERS Safety Report 7495589-2 (Version None)
Quarter: 2011Q2

REPORT INFORMATION
  Report Type: 
  Country: None (occurrence: None)
  Receive Date: 20110523
  Receipt Date: 20110518
  Transmission Date: 20111010
  Serious: Yes (Other)
  Sender: FDA-Public Use
  Company Number: US-SHIRE-SPV1-2011-00702

PATIENT
  Sex: Male
  Weight: 58.957 kg

DRUGS (4)
  1. VYVANSE [Suspect]
     Indication: ATTENTION DEFICIT/HYPERACTIVITY DISORDER
     Dosage: 30 MG, 1X/DAY:QD
     Route: 048
     Dates: start: 20090101, end: 20100101
  2. VYVANSE [Suspect]
     Dosage: 30 MG, WEEKENDS
     Route: 050
  3. VYVANSE [Suspect]
     Dosage: 40 MG, 1X/DAY:QD
     Route: 048
     Dates: start: 20100101, end: 20110401
  4. VYVANSE [Suspect]
     Dosage: 50 MG, SCHOOL DAYS
     Route: 048
     Dates: start: 20110401

REACTIONS (4)
  - RETINAL VEIN OCCLUSION [None]
  - SCOTOMA [None]
  - RETINAL DETACHMENT [None]
  - EDUCATIONAL PROBLEM [None]
